FAERS Safety Report 7811928-4 (Version None)
Quarter: 2011Q4

REPORT INFORMATION
  Report Type: 
  Country: None (occurrence: None)
  Receive Date: 20111013
  Receipt Date: 20111007
  Transmission Date: 20120403
  Serious: Yes (Hospitalization)
  Sender: FDA-Public Use
  Company Number: PHHY2011US65512

PATIENT
  Sex: Male
  Weight: 86.621 kg

DRUGS (1)
  1. EXJADE [Suspect]
     Dosage: UNK UKN, UNK
     Route: 048
     Dates: start: 20060707

REACTIONS (1)
  - ROAD TRAFFIC ACCIDENT [None]
